FAERS Safety Report 12268664 (Version 1)
Quarter: 2016Q2

REPORT INFORMATION
  Report Type: Spontaneous
  Country: SE (occurrence: SE)
  Receive Date: 20160414
  Receipt Date: 20160414
  Transmission Date: 20160815
  Serious: Yes (Hospitalization)
  Sender: FDA-Public Use
  Company Number: SE-TEVA-650523ISR

PATIENT
  Age: 43 Year
  Sex: Female

DRUGS (1)
  1. PACLITAXEL. [Suspect]
     Active Substance: PACLITAXEL
     Route: 042

REACTIONS (3)
  - Respiratory distress [Not Recovered/Not Resolved]
  - Pallor [Not Recovered/Not Resolved]
  - Akathisia [Not Recovered/Not Resolved]
